FAERS Safety Report 5606855-7 (Version None)
Quarter: 2008Q1

REPORT INFORMATION
  Report Type: 
  Country: None (occurrence: None)
  Receive Date: 20080129
  Receipt Date: 20080122
  Transmission Date: 20080703
  Serious: Yes (Death, Hospitalization)
  Sender: FDA-Public Use
  Company Number: SI-BOEHRINGER INGELHEIM GMBH, GERMANY-2007-AP-00375AP

PATIENT
  Sex: Female
  Weight: 98 kg

DRUGS (6)
  1. MICARDIS [Suspect]
     Route: 048
     Dates: start: 20070424, end: 20070620
  2. OLIVIN [Concomitant]
  3. EUTHYROX [Concomitant]
  4. RAWEL SR [Concomitant]
  5. ASPIRIN [Concomitant]
  6. VASILIP [Concomitant]

REACTIONS (3)
  - BLOOD PRESSURE DECREASED [None]
  - SEPSIS [None]
  - URINARY TRACT INFECTION [None]
